FAERS Safety Report 8525523-5 (Version None)
Quarter: 2012Q3

REPORT INFORMATION
  Report Type: 
  Country: None (occurrence: None)
  Receive Date: 20120720
  Receipt Date: 20120715
  Transmission Date: 20120928
  Serious: Yes (Hospitalization)
  Sender: FDA-Public Use
  Company Number: US-B.I. PHARMACEUTICALS,INC./RIDGEFIELD-2012-BP-14401BP

PATIENT
  Sex: Female
  Weight: 53.52 kg

DRUGS (3)
  1. SOTALOL HYDROCHLORIDE [Concomitant]
     Dates: start: 20110201
  2. PRADAXA [Suspect]
     Indication: ATRIAL FIBRILLATION
  3. PRADAXA [Suspect]
     Indication: CEREBROVASCULAR ACCIDENT PROPHYLAXIS
     Dosage: 300 MG
     Route: 048
     Dates: start: 20111201, end: 20120618

REACTIONS (4)
  - HAEMOSIDEROSIS [None]
  - PULMONARY ALVEOLAR HAEMORRHAGE [None]
  - PNEUMONIA [None]
  - DYSPNOEA [None]
